FAERS Safety Report 13821137 (Version 2)
Quarter: 2017Q3

REPORT INFORMATION
  Report Type: Spontaneous
  Country: DK (occurrence: DK)
  Receive Date: 20170801
  Receipt Date: 20170801
  Transmission Date: 20171127
  Serious: Yes (Hospitalization, Other)
  Sender: FDA-Public Use
  Company Number: DK-TEVA-789612ISR

PATIENT
  Age: 61 Year
  Sex: Female

DRUGS (4)
  1. METHOTREXATE. [Suspect]
     Active Substance: METHOTREXATE
     Route: 065
     Dates: start: 201405
  2. PREDNISOLONE. [Suspect]
     Active Substance: PREDNISOLONE
     Route: 065
     Dates: start: 201405
  3. NEOTIGASON [Suspect]
     Active Substance: ACITRETIN
     Route: 065
     Dates: start: 201405
  4. NEOTIGASON [Suspect]
     Active Substance: ACITRETIN
     Indication: LICHEN PLANUS
     Dosage: 25 MILLIGRAM DAILY;
     Route: 065
     Dates: start: 20150722

REACTIONS (4)
  - Peripheral sensory neuropathy [Unknown]
  - Peripheral motor neuropathy [Unknown]
  - Headache [Unknown]
  - Drug ineffective [Unknown]

NARRATIVE: CASE EVENT DATE: 201405
